FAERS Safety Report 25641703 (Version 2)
Quarter: 2025Q3

REPORT INFORMATION
  Report Type: Spontaneous
  Country: CN (occurrence: CN)
  Receive Date: 20250804
  Receipt Date: 20250808
  Transmission Date: 20251021
  Serious: Yes (Other)
  Sender: MERCK SHARP & DOHME LLC
  Company Number: CN-009507513-2315613

PATIENT
  Age: 59 Year
  Sex: Female

DRUGS (3)
  1. TEMODAL [Suspect]
     Active Substance: TEMOZOLOMIDE
     Indication: Glioblastoma
     Route: 065
     Dates: start: 202301
  2. TEMODAL [Suspect]
     Active Substance: TEMOZOLOMIDE
     Indication: Glioblastoma
     Route: 065
  3. TEMODAL [Suspect]
     Active Substance: TEMOZOLOMIDE
     Indication: Glioblastoma
     Route: 065

REACTIONS (7)
  - Malignant neoplasm progression [Unknown]
  - Bradyphrenia [Unknown]
  - Gait disturbance [Recovering/Resolving]
  - Memory impairment [Unknown]
  - Language disorder [Recovering/Resolving]
  - Tumour pseudoprogression [Unknown]
  - Recurrent cancer [Unknown]

NARRATIVE: CASE EVENT DATE: 20230901
